FAERS Safety Report 9427979 (Version 1)
Quarter: 2013Q3

REPORT INFORMATION
  Report Type: Report from Study
  Country: US (occurrence: US)
  Receive Date: 20130730
  Receipt Date: 20130730
  Transmission Date: 20140515
  Serious: No
  Sender: FDA-Public Use
  Company Number: US-ABBOTT-12P-163-0971785-00

PATIENT
  Sex: Male

DRUGS (7)
  1. NIASPAN (COATED) 1000MG [Suspect]
     Indication: ISCHAEMIC HEART DISEASE PROPHYLAXIS
     Dates: start: 2010
  2. NIASPAN (COATED) 1000MG [Suspect]
     Indication: BLOOD CHOLESTEROL INCREASED
  3. ASA [Concomitant]
     Indication: PRODUCT USED FOR UNKNOWN INDICATION
     Dosage: BEFORE THE DOSE OF NIASPAN COATED
  4. ASA [Concomitant]
     Dosage: BEFORE THE DOSE OF NIASPAN COATED
  5. ASA [Concomitant]
     Dosage: BEFORE THE DOSE OF NIASPAN COATED
  6. LIPITOR [Concomitant]
     Indication: PRODUCT USED FOR UNKNOWN INDICATION
  7. COUMADIN [Concomitant]
     Indication: PRODUCT USED FOR UNKNOWN INDICATION

REACTIONS (2)
  - Flushing [Recovered/Resolved]
  - Hot flush [Recovered/Resolved]
